FAERS Safety Report 13502523 (Version 1)
Quarter: 2017Q2

REPORT INFORMATION
  Report Type: Spontaneous
  Country: US (occurrence: US)
  Receive Date: 20170502
  Receipt Date: 20170502
  Transmission Date: 20170830
  Serious: No
  Sender: FDA-Public Use
  Company Number: US-AUROBINDO-AUR-APU-2014-11848

PATIENT

DRUGS (1)
  1. MINOCYCLINE HYDROCHLORIDE CAPSULES USP 50 MG [Suspect]
     Active Substance: MINOCYCLINE HYDROCHLORIDE
     Indication: ROSACEA
     Dosage: 50 MG, TWO TIMES A DAY
     Route: 048

REACTIONS (1)
  - Tinnitus [Not Recovered/Not Resolved]
